FAERS Safety Report 7931677 (Version 3)
Quarter: 2013Q2

REPORT INFORMATION
  Report Type: Report from Study
  Country: IT (occurrence: IT)
  Receive Date: 20110505
  Receipt Date: 20130419
  Transmission Date: 20140414
  Serious: Yes (Hospitalization)
  Sender: FDA-Public Use
  Company Number: IT-MPIJNJ-2011-01738

PATIENT
  Sex: 0

DRUGS (12)
  1. VELCADE [Suspect]
     Indication: PLASMA CELL MYELOMA
     Dosage: 2 MG, UNK
     Route: 042
     Dates: start: 20110411, end: 20110422
  2. DEXAMETHASONE [Suspect]
     Indication: PLASMA CELL MYELOMA
     Dosage: 40 MG, UNK
     Route: 048
     Dates: start: 20110411, end: 20110422
  3. MELPHALAN [Suspect]
     Indication: PLASMA CELL MYELOMA
     Dosage: 12 MG, UNK
     Route: 048
     Dates: start: 20110411, end: 20110422
  4. OMEPRAZOLE [Concomitant]
     Indication: PROPHYLAXIS
     Dosage: 20 MG, UNK
     Route: 048
     Dates: start: 20110411
  5. CIPROFLOXACIN [Concomitant]
     Indication: PROPHYLAXIS
     Dosage: 250 MG, UNK
     Route: 048
     Dates: start: 20110411, end: 20110421
  6. ACICLOVIR [Concomitant]
     Indication: PROPHYLAXIS
     Dosage: 400 MG, UNK
     Route: 048
     Dates: start: 20110411, end: 20110421
  7. PYRIDOXINE [Concomitant]
     Indication: PROPHYLAXIS
     Dosage: 50 MG, UNK
     Route: 048
     Dates: start: 20110411
  8. ENALAPRIL [Concomitant]
     Indication: HYPERTENSION
     Dosage: 5 MG, UNK
     Route: 048
  9. BISOPROLOL [Concomitant]
     Indication: CARDIAC FAILURE CONGESTIVE
     Dosage: 2.5 MG, UNK
     Route: 048
  10. CANRENOIC ACID [Concomitant]
     Indication: FLUID RETENTION
     Dosage: 25 MG, UNK
     Route: 048
  11. FUROSEMIDE [Concomitant]
     Indication: FLUID RETENTION
     Dosage: 25 MG, UNK
     Route: 048
  12. MIDODRINE [Concomitant]
     Indication: HYPERTENSION
     Dosage: 2.5 MG, UNK
     Route: 048
     Dates: start: 20110418

REACTIONS (2)
  - Chest pain [Recovered/Resolved]
  - Abdominal pain upper [Recovered/Resolved]
